FAERS Safety Report 13011497 (Version 1)
Quarter: 2016Q4

REPORT INFORMATION
  Report Type: Spontaneous
  Country: US (occurrence: US)
  Receive Date: 20161209
  Receipt Date: 20161209
  Transmission Date: 20170207
  Serious: No
  Sender: FDA-Public Use
  Company Number: US-AMGEN-USASP2016172499

PATIENT
  Age: 47 Year
  Sex: Female

DRUGS (12)
  1. VALACYCLOVIR HYDROCHLORIDE. [Concomitant]
     Active Substance: VALACYCLOVIR HYDROCHLORIDE
     Indication: PEMPHIGOID
     Dosage: UNK UNK, TID
     Route: 048
  2. ENBREL [Suspect]
     Active Substance: ETANERCEPT
     Indication: PEMPHIGOID
     Dosage: 25 MG, WEEKLY
     Route: 058
     Dates: start: 200406
  3. IMMUNOGLOBULIN [Concomitant]
     Active Substance: HUMAN IMMUNOGLOBULIN G
     Indication: PEMPHIGOID
     Dosage: 2G/KG GIVEN OVER 5 DAYS EVERY THREE WEEKS
  4. IMMUNOGLOBULIN [Concomitant]
     Active Substance: HUMAN IMMUNOGLOBULIN G
     Dosage: UNK 2 WEEKS AFTER EACH CYCLE
  5. NYSTATIN. [Concomitant]
     Active Substance: NYSTATIN
     Indication: PEMPHIGOID
     Dosage: UNK UNK, BID
     Dates: start: 200309
  6. CYCLOSPORINE. [Concomitant]
     Active Substance: CYCLOSPORINE
     Indication: PEMPHIGOID
     Dosage: 0.05 %, UNK
  7. CLOBETASOL PROPIONATE. [Concomitant]
     Active Substance: CLOBETASOL PROPIONATE
     Indication: PEMPHIGOID
     Dosage: UNK UNK, BID
     Route: 061
  8. ACYCLOVIR. [Concomitant]
     Active Substance: ACYCLOVIR
     Indication: PEMPHIGOID
     Dosage: UNK UNK, QID
  9. FLUOCINONIDE. [Concomitant]
     Active Substance: FLUOCINONIDE
     Indication: PEMPHIGOID
     Dosage: 0.05 %, UNK
     Route: 061
  10. HYDROCHLOROTHIAZIDE. [Concomitant]
     Active Substance: HYDROCHLOROTHIAZIDE
     Indication: HYPERTENSION
     Dosage: 25 MG, QD
  11. ENBREL [Suspect]
     Active Substance: ETANERCEPT
     Dosage: 50 MG, ONCE WEEKLY
     Route: 058
  12. DEXAMETHASONE. [Concomitant]
     Active Substance: DEXAMETHASONE
     Indication: PEMPHIGOID
     Dosage: UNK

REACTIONS (2)
  - Lymphopenia [Unknown]
  - Off label use [Unknown]

NARRATIVE: CASE EVENT DATE: 200406
